FAERS Safety Report 5161112-0 (Version None)
Quarter: 2006Q4

REPORT INFORMATION
  Report Type: 
  Country: None (occurrence: None)
  Receive Date: 20061130
  Receipt Date: 20060907
  Transmission Date: 20070319
  Serious: Yes (Death, Hospitalization)
  Sender: FDA-Public Use
  Company Number: HQWYE402507SEP06

PATIENT
  Age: 47 Year
  Sex: Male

DRUGS (2)
  1. ENBREL [Suspect]
     Indication: PSORIASIS
     Route: 058
     Dates: start: 20060127, end: 20060902
  2. MEDROL [Concomitant]
     Indication: PSORIASIS
     Route: 065

REACTIONS (7)
  - DERMATITIS EXFOLIATIVE [None]
  - KLEBSIELLA INFECTION [None]
  - MYOCARDIAL INFARCTION [None]
  - ORAL CANDIDIASIS [None]
  - PYREXIA [None]
  - REBOUND EFFECT [None]
  - URINARY TRACT INFECTION [None]
